FAERS Safety Report 16904048 (Version 1)
Quarter: 2019Q4

REPORT INFORMATION
  Report Type: Spontaneous
  Country: US (occurrence: US)
  Receive Date: 20191009
  Receipt Date: 20191009
  Transmission Date: 20200122
  Serious: No
  Sender: FDA-Public Use
  Company Number: None

PATIENT
  Age: 59 Year
  Sex: Male

DRUGS (1)
  1. LOKELMA [Suspect]
     Active Substance: SODIUM ZIRCONIUM CYCLOSILICATE
     Indication: HYPERKALAEMIA
     Route: 048
     Dates: start: 20190919, end: 20190927

REACTIONS (4)
  - Paraesthesia oral [None]
  - Joint swelling [None]
  - Condition aggravated [None]
  - Peripheral swelling [None]

NARRATIVE: CASE EVENT DATE: 20190927
